FAERS Safety Report 6047692-1 (Version None)
Quarter: 2009Q1

REPORT INFORMATION
  Report Type: 
  Country: None (occurrence: None)
  Receive Date: 20090123
  Receipt Date: 20090116
  Transmission Date: 20090719
  Serious: Yes (Hospitalization, Other)
  Sender: FDA-Public Use
  Company Number: CH-JNJFOC-20090103233

PATIENT
  Age: 27 Year
  Sex: Male

DRUGS (1)
  1. HALDOL [Suspect]
     Indication: SCHIZOPHRENIA
     Route: 048

REACTIONS (5)
  - AKATHISIA [None]
  - DYSKINESIA [None]
  - MUSCLE SPASMS [None]
  - TORTICOLLIS [None]
  - TRISMUS [None]
